FAERS Safety Report 4776148-9 (Version None)
Quarter: 2005Q3

REPORT INFORMATION
  Report Type: 
  Country: None (occurrence: None)
  Receive Date: 20050922
  Receipt Date: 20050914
  Transmission Date: 20060218
  Serious: Yes (Other)
  Sender: FDA-Public Use
  Company Number: AU-BRISTOL-MYERS SQUIBB COMPANY-13114707

PATIENT

DRUGS (1)
  1. MUCOMYST [Suspect]
     Dosage: PRESCRIBED DOSE OF 600MG, BUT RECEIVED 3 GRAMS AS TOTAL DOSE.
     Route: 048

REACTIONS (3)
  - ACCIDENTAL OVERDOSE [None]
  - ADVERSE EVENT [None]
  - INCORRECT DOSE ADMINISTERED [None]
